FAERS Safety Report 8819798 (Version 1)
Quarter: 2012Q4

REPORT INFORMATION
  Report Type: 
  Country: US (occurrence: US)
  Receive Date: 20121001
  Receipt Date: 20121001
  Transmission Date: 20130627
  Serious: Yes (Death)
  Sender: FDA-Public Use
  Company Number: US-ROCHE-1124759

PATIENT
  Sex: Female
  Weight: 56 kg

DRUGS (6)
  1. HERCEPTIN [Suspect]
     Indication: BREAST CANCER
     Dosage: loading dose
     Route: 065
  2. HERCEPTIN [Suspect]
     Dosage: maintenance dose
     Route: 065
  3. TAMOXIFEN [Concomitant]
  4. SOLU-CORTEF [Concomitant]
     Route: 065
  5. BENADRYL [Concomitant]
     Route: 065
  6. ATIVAN [Concomitant]
     Route: 065

REACTIONS (8)
  - Death [Fatal]
  - Cough [Unknown]
  - Dyspnoea [Unknown]
  - Wheezing [Unknown]
  - Vomiting [Unknown]
  - Chest discomfort [Unknown]
  - Back pain [Unknown]
  - Neck pain [Unknown]
